FAERS Safety Report 9447231 (Version 1)
Quarter: 2013Q3

REPORT INFORMATION
  Report Type: Spontaneous
  Country: US (occurrence: US)
  Receive Date: 20130807
  Receipt Date: 20130807
  Transmission Date: 20140515
  Serious: No
  Sender: FDA-Public Use
  Company Number: US-009507513-1308USA002890

PATIENT
  Age: 37 Year
  Sex: Female

DRUGS (1)
  1. IMPLANON [Suspect]
     Indication: CONTRACEPTION
     Dosage: UNKNOWN, 68MG
     Route: 059
     Dates: start: 20110805

REACTIONS (2)
  - Implant site swelling [Not Recovered/Not Resolved]
  - Implant site erythema [Not Recovered/Not Resolved]
